FAERS Safety Report 7318698-7 (Version None)
Quarter: 2011Q1

REPORT INFORMATION
  Report Type: 
  Country: None (occurrence: None)
  Receive Date: 20110228
  Receipt Date: 20110215
  Transmission Date: 20110831
  Serious: No
  Sender: FDA-Public Use
  Company Number: US-ROXANE LABORATORIES, INC.-2011-RO-00194RO

PATIENT
  Sex: Female

DRUGS (6)
  1. RAMIPRIL [Suspect]
     Indication: HYPERTENSION
     Dosage: 20 MG
     Route: 048
     Dates: start: 20110101
  2. LEVOTHYROXINE [Concomitant]
     Indication: HYPOTHYROIDISM
  3. MULTI-VITAMIN [Concomitant]
  4. MESTINON [Concomitant]
     Indication: MYASTHENIA GRAVIS
  5. CITALOPRAM HYDROBROMIDE [Concomitant]
     Dosage: 20 MG
  6. LORTAB [Concomitant]
     Indication: PAIN

REACTIONS (4)
  - MIGRAINE [None]
  - COUGH [None]
  - WHEEZING [None]
  - FLUID RETENTION [None]
